FAERS Safety Report 8206909-5 (Version None)
Quarter: 2012Q1

REPORT INFORMATION
  Report Type: 
  Country: None (occurrence: None)
  Receive Date: 20120314
  Receipt Date: 20120304
  Transmission Date: 20120608
  Serious: Yes (Other)
  Sender: FDA-Public Use
  Company Number: CA-JNJFOC-20120301876

PATIENT
  Sex: Male
  Weight: 97 kg

DRUGS (3)
  1. SOLU-CORTEF [Concomitant]
     Indication: PREMEDICATION
     Route: 065
  2. REMICADE [Suspect]
     Route: 042
     Dates: start: 20050101
  3. REMICADE [Suspect]
     Indication: CROHN'S DISEASE
     Route: 042
     Dates: start: 20120304

REACTIONS (3)
  - THROAT TIGHTNESS [None]
  - INFUSION RELATED REACTION [None]
  - THROAT IRRITATION [None]
